FAERS Safety Report 6244414-6 (Version None)
Quarter: 2009Q2

REPORT INFORMATION
  Report Type: 
  Country: None (occurrence: None)
  Receive Date: 20090625
  Receipt Date: 20090618
  Transmission Date: 20091009
  Serious: Yes (Life-Threatening)
  Sender: FDA-Public Use
  Company Number: DE-ELI_LILLY_AND_COMPANY-DE200906004465

PATIENT
  Age: 68 Year
  Sex: Male

DRUGS (2)
  1. XIGRIS [Suspect]
     Indication: SEPSIS
     Dosage: UNK, UNKNOWN
     Route: 042
     Dates: start: 20090616, end: 20090617
  2. HEPARIN [Concomitant]
     Dosage: 5000 IU, DAILY (1/D)
     Route: 065

REACTIONS (1)
  - THROMBOCYTOPENIA [None]
